FAERS Safety Report 10613215 (Version 4)
Quarter: 2015Q1

REPORT INFORMATION
  Report Type: Spontaneous
  Country: FR (occurrence: FR)
  Receive Date: 20141128
  Receipt Date: 20150119
  Transmission Date: 20150720
  Serious: Yes (Death, Other)
  Sender: FDA-Public Use
  Company Number: FR-BRISTOL-MYERS SQUIBB COMPANY-21624440

PATIENT
  Sex: Male
  Weight: 79 kg

DRUGS (1)
  1. YERVOY [Suspect]
     Active Substance: IPILIMUMAB
     Indication: MALIGNANT MELANOMA
     Dosage: NO OF INJ:4
     Route: 065
     Dates: start: 20140911, end: 20141113

REACTIONS (3)
  - Malignant neoplasm progression [Fatal]
  - Portal vein thrombosis [Unknown]
  - Eosinophilia [Unknown]
